FAERS Safety Report 7657481 (Version 3)
Quarter: 2014Q2

REPORT INFORMATION
  Report Type: Spontaneous
  Country: US (occurrence: US)
  Receive Date: 20101105
  Receipt Date: 20140515
  Transmission Date: 20141212
  Serious: Yes (Hospitalization, Other)
  Sender: FDA-Public Use
  Company Number: US-BAYER-201017828NA

PATIENT
  Age: 28 Year
  Sex: Female

DRUGS (7)
  1. YAZ [Suspect]
     Dosage: UNK
     Route: 048
     Dates: start: 2002, end: 20100505
  2. SKELAXIN [Concomitant]
     Dosage: UNK
     Dates: start: 20100112
  3. VICODIN [Concomitant]
  4. KAPIDEX [Concomitant]
     Dosage: UNK
     Dates: start: 20100112
  5. ASPIRIN [Concomitant]
     Dosage: UNK
     Dates: start: 20100112
  6. ZOSYN [Concomitant]
     Indication: PAIN
  7. DILAUDID [Concomitant]
     Indication: PAIN

REACTIONS (8)
  - Cholecystitis [None]
  - Gallbladder disorder [None]
  - Injury [None]
  - Pain [None]
  - General physical health deterioration [None]
  - Emotional distress [None]
  - Anxiety [None]
  - Pain [None]
